FAERS Safety Report 15545358 (Version 2)
Quarter: 2019Q1

REPORT INFORMATION
  Report Type: Spontaneous
  Country: NO (occurrence: NO)
  Receive Date: 20181024
  Receipt Date: 20190201
  Transmission Date: 20190417
  Serious: Yes (Life-Threatening, Hospitalization, Other)
  Sender: FDA-Public Use
  Company Number: NO-ACCORD-073683

PATIENT
  Age: 66 Year
  Sex: Male

DRUGS (4)
  1. PEMETREXED. [Suspect]
     Active Substance: PEMETREXED
     Indication: MESOTHELIOMA MALIGNANT
     Dosage: 3RD INFUSION IN THE SECOND COURSE OF CHEMOTHERAPY, WHICH STARTED ON 12-OCT- 2017.
     Route: 042
     Dates: start: 20171205, end: 20171205
  2. CARBOPLATIN. [Suspect]
     Active Substance: CARBOPLATIN
     Indication: MESOTHELIOMA MALIGNANT
     Dosage: 3RD INFUSION IN THE SECOND COURSE OF CHEMOTHERAPY, WHICH STARTED ON 12-OCT-2017.
     Route: 042
     Dates: start: 20171205, end: 20171205
  3. DEXAMETHASONE. [Concomitant]
     Active Substance: DEXAMETHASONE
     Indication: PREMEDICATION
     Dosage: 8 MG AT 24 HOURS, 12 HOURS, AND 1 HOUR BEFORE START OF INFUSION OF CHEMOTHERAPY.
     Route: 048
     Dates: start: 20171204, end: 20171205
  4. DEXCHLORPHENIRAMINE [Concomitant]
     Active Substance: DEXCHLORPHENIRAMINE
     Indication: PREMEDICATION
     Dosage: 1,5 HOURS BEFORE START OF INFUSION OF CHEMOTHERAPY.
     Dates: start: 20171205, end: 20171205

REACTIONS (7)
  - Dysarthria [Recovered/Resolved]
  - Ocular hyperaemia [Recovered/Resolved]
  - Loss of consciousness [Recovered/Resolved]
  - Hypotension [Recovered/Resolved]
  - Dyspnoea [Recovered/Resolved]
  - Cold sweat [Recovered/Resolved]
  - Off label use [Unknown]

NARRATIVE: CASE EVENT DATE: 20171205
